FAERS Safety Report 15295674 (Version 1)
Quarter: 2018Q3

REPORT INFORMATION
  Report Type: Spontaneous
  Country: CA (occurrence: CA)
  Receive Date: 20180804
  Receipt Date: 20180804
  Transmission Date: 20181010
  Serious: Yes (Disabling)
  Sender: FDA-Public Use
  Company Number: None

PATIENT
  Age: 44 Year
  Sex: Female
  Weight: 58.06 kg

DRUGS (1)
  1. MIRENA [Suspect]
     Active Substance: LEVONORGESTREL

REACTIONS (6)
  - Headache [None]
  - Abdominal pain [None]
  - Back pain [None]
  - Fatigue [None]
  - Bacterial vaginosis [None]
  - Insomnia [None]

NARRATIVE: CASE EVENT DATE: 20180320
